FAERS Safety Report 8010046-2 (Version None)
Quarter: 2011Q4

REPORT INFORMATION
  Report Type: 
  Country: None (occurrence: None)
  Receive Date: 20111221
  Receipt Date: 20111212
  Transmission Date: 20120403
  Serious: Yes (Other)
  Sender: FDA-Public Use
  Company Number: 2011P1014286

PATIENT
  Age: 19 Year
  Sex: Male

DRUGS (4)
  1. RISPERIDONE [Suspect]
     Indication: OBSESSIVE-COMPULSIVE DISORDER
     Dosage: 3 MG;QD
  2. FLUVOXAMINE (NO PREF. NAME) [Suspect]
     Indication: OBSESSIVE-COMPULSIVE DISORDER
     Dosage: 50 MG;QD 150 MG;QD
  3. SUSTAINED-RELEASE PAROXETINE [Concomitant]
  4. CLOMIPRAMINE HCL [Concomitant]

REACTIONS (4)
  - SEDATION [None]
  - GYNAECOMASTIA [None]
  - GALACTORRHOEA [None]
  - DRUG INTERACTION [None]
